FAERS Safety Report 6870138-8 (Version None)
Quarter: 2010Q3

REPORT INFORMATION
  Report Type: 
  Country: None (occurrence: None)
  Receive Date: 20100721
  Receipt Date: 20100715
  Transmission Date: 20110219
  Serious: Yes (Other)
  Sender: FDA-Public Use
  Company Number: 015265

PATIENT
  Sex: Male

DRUGS (8)
  1. KEPPRA [Suspect]
     Indication: EPILEPSY
     Dosage: (1500 MG ORAL), (1250 MG BID ORAL)
     Route: 048
     Dates: start: 20081001
  2. KEPPRA [Suspect]
     Indication: EPILEPSY
     Dosage: (1500 MG ORAL), (1250 MG BID ORAL)
     Route: 048
     Dates: start: 20090701
  3. PIRACETAM (PIRACETAM) [Suspect]
     Indication: MYOCLONUS
     Dosage: (6 G TID ORAL)
     Route: 048
     Dates: start: 20000101
  4. BUMETANIDE [Concomitant]
  5. PANTOPRAZOLE [Concomitant]
  6. VALPROIC ACID [Concomitant]
  7. CLONAZEPAM [Concomitant]
  8. LAMOTRIGINE [Concomitant]

REACTIONS (6)
  - ANTICONVULSANT DRUG LEVEL INCREASED [None]
  - CONDITION AGGRAVATED [None]
  - DISEASE PROGRESSION [None]
  - DRUG INTERACTION [None]
  - LABORATORY TEST INTERFERENCE [None]
  - MYOCLONUS [None]
